FAERS Safety Report 6545485-X (Version None)
Quarter: 2010Q1

REPORT INFORMATION
  Report Type: 
  Country: None (occurrence: None)
  Receive Date: 20100119
  Receipt Date: 20100107
  Transmission Date: 20100710
  Serious: Yes (Hospitalization, Other)
  Sender: FDA-Public Use
  Company Number: 2010SP001687

PATIENT
  Age: 48 Year
  Sex: Female
  Weight: 92.7 kg

DRUGS (10)
  1. TEMOZOLOMIDE [Suspect]
     Indication: BREAST CANCER METASTATIC
     Dosage: 150 MG/M2; PO
     Route: 048
     Dates: start: 20091111, end: 20091115
  2. ABT-888 (INVESTIGATIONAL DRUG) [Suspect]
     Indication: BREAST CANCER METASTATIC
     Dosage: 80 MG, QD; PO
     Route: 048
     Dates: start: 20091111, end: 20091117
  3. OS-CAL [Concomitant]
  4. HYDROMORPHONE [Concomitant]
  5. HYDROCHLORIDE [Concomitant]
  6. LISINOPRIL [Concomitant]
  7. VIGRAN [Concomitant]
  8. OXYCODONE HCL [Concomitant]
  9. TYLOX [Concomitant]
  10. ZOFRAN [Concomitant]

REACTIONS (6)
  - AXILLARY PAIN [None]
  - BREAST CANCER METASTATIC [None]
  - CARDIAC TAMPONADE [None]
  - MALIGNANT NEOPLASM PROGRESSION [None]
  - PERICARDIAL EFFUSION [None]
  - PLEURAL EFFUSION [None]
